FAERS Safety Report 5558382-3 (Version None)
Quarter: 2007Q4

REPORT INFORMATION
  Report Type: 
  Country: None (occurrence: None)
  Receive Date: 20071214
  Receipt Date: 20071204
  Transmission Date: 20080405
  Serious: Yes (Other)
  Sender: FDA-Public Use
  Company Number: US-PFIZER INC-2007102097

PATIENT
  Sex: Male
  Weight: 79.545 kg

DRUGS (4)
  1. LIPITOR [Suspect]
     Indication: BLOOD CHOLESTEROL INCREASED
  2. ZETIA [Concomitant]
  3. AVANDAMET [Concomitant]
  4. COZAAR [Concomitant]

REACTIONS (6)
  - ARTHRALGIA [None]
  - ARTHRITIS [None]
  - ARTHROPATHY [None]
  - HIP ARTHROPLASTY [None]
  - MUSCLE SPASMS [None]
  - MYALGIA [None]
